FAERS Safety Report 26186437 (Version 1)
Quarter: 2025Q4

REPORT INFORMATION
  Report Type: Spontaneous
  Country: US (occurrence: None)
  Receive Date: 20251222
  Receipt Date: 20251222
  Transmission Date: 20260117
  Serious: No
  Sender: FDA-CTU
  Company Number: None

PATIENT

DRUGS (1)
  1. ARTIFICIAL TEARS (POLYVINYL ALCOHOL\POVIDONE K29/32) [Suspect]
     Active Substance: POLYVINYL ALCOHOL\POVIDONE K29/32

REACTIONS (1)
  - Drug ineffective [None]
